FAERS Safety Report 23287896 (Version 1)
Quarter: 2023Q4

REPORT INFORMATION
  Report Type: Report from Study
  Country: GB (occurrence: GB)
  Receive Date: 20231212
  Receipt Date: 20231212
  Transmission Date: 20240110
  Serious: Yes (Other)
  Sender: FDA-Public Use
  Company Number: GB-002147023-NVSC2023GB232998

PATIENT
  Sex: Female

DRUGS (1)
  1. OFATUMUMAB [Suspect]
     Active Substance: OFATUMUMAB
     Indication: Multiple sclerosis
     Dosage: UNK
     Route: 058
     Dates: start: 20231020

REACTIONS (9)
  - Lower respiratory tract infection [Unknown]
  - Feeling of body temperature change [Recovered/Resolved]
  - Pain in extremity [Recovered/Resolved]
  - Limb discomfort [Recovered/Resolved]
  - Dizziness [Recovered/Resolved]
  - Mouth ulceration [Unknown]
  - Gingival bleeding [Unknown]
  - Headache [Recovered/Resolved]
  - Labyrinthitis [Unknown]

NARRATIVE: CASE EVENT DATE: 20231020
